FAERS Safety Report 16824717 (Version 1)
Quarter: 2019Q3

REPORT INFORMATION
  Report Type: Spontaneous
  Country: JP (occurrence: MM)
  Receive Date: 20190918
  Receipt Date: 20190918
  Transmission Date: 20191005
  Serious: Yes (Other)
  Sender: FDA-Public Use
  Company Number: JP-009507513-1909MMR006689

PATIENT
  Age: 38 Year
  Sex: Male
  Weight: 56.01 kg

DRUGS (18)
  1. IMIPENEM AND CILASTATIN [Suspect]
     Active Substance: CILASTATIN SODIUM\IMIPENEM
     Indication: TUBERCULOSIS
     Dosage: 1 GRAM, BID
     Route: 065
     Dates: start: 20170601, end: 20180606
  2. LINEZOLID. [Suspect]
     Active Substance: LINEZOLID
     Indication: TUBERCULOSIS
     Dosage: 600 MILLIGRAM, QD
     Route: 048
     Dates: start: 20170601
  3. VITAMINS (UNSPECIFIED) [Concomitant]
     Active Substance: VITAMINS
     Indication: MALNUTRITION
  4. CLOFAZIMINE [Suspect]
     Active Substance: CLOFAZIMINE
     Dosage: 100 MILLIGRAM, QD
     Route: 048
     Dates: start: 2017, end: 20190531
  5. PZA (PYRAZINAMIDE) [Suspect]
     Active Substance: PYRAZINAMIDE
     Indication: TUBERCULOSIS
     Dosage: 1500 MILLIGRAM, QD
     Route: 065
     Dates: start: 20170601, end: 20180606
  6. VITAMIN B (UNSPECIFIED) [Concomitant]
     Active Substance: VITAMIN B
  7. CLOFAZIMINE [Suspect]
     Active Substance: CLOFAZIMINE
     Indication: TUBERCULOSIS
     Dosage: 200 MILLIGRAM, FOR 2 MONTHS QD
     Route: 048
     Dates: start: 20170601, end: 2017
  8. ERGOCALCIFEROL. [Concomitant]
     Active Substance: ERGOCALCIFEROL
  9. VITAMIN A [Concomitant]
     Active Substance: VITAMIN A
  10. BEDAQUILINE [Suspect]
     Active Substance: BEDAQUILINE
     Indication: TUBERCULOSIS
     Dosage: 400 MILLIGRAM, QD FOR 2 WEEKS
     Route: 048
     Dates: start: 20170601, end: 201706
  11. PYRIDOXINE [Concomitant]
     Active Substance: PYRIDOXINE
     Indication: PROPHYLAXIS
     Dosage: UNK
     Dates: start: 20170601, end: 20190531
  12. LINEZOLID. [Suspect]
     Active Substance: LINEZOLID
     Dosage: 300 MILLIGRAM, QD
     Route: 048
     Dates: start: 20170803, end: 20180802
  13. BEDAQUILINE [Suspect]
     Active Substance: BEDAQUILINE
     Dosage: 200 MILLIGRAM, QD, 3 TIMES A WEEK
     Route: 048
     Dates: start: 201706, end: 20190531
  14. AMINOSALICYLIC ACID [Suspect]
     Active Substance: AMINOSALICYLIC ACID
     Indication: TUBERCULOSIS
     Dosage: 4 GRAM, BID
     Route: 048
     Dates: start: 20170601, end: 20190531
  15. DELAMANID [Suspect]
     Active Substance: DELAMANID
     Indication: TUBERCULOSIS
     Dosage: UNK
     Route: 065
     Dates: start: 20170601, end: 2017
  16. AMOXICLAV [Suspect]
     Active Substance: AMOXICILLIN\CLAVULANATE POTASSIUM
     Indication: TUBERCULOSIS
     Dosage: 625 MILLIGRAM, BID
     Route: 065
     Dates: start: 20170601, end: 20180606
  17. FOLIC ACID. [Concomitant]
     Active Substance: FOLIC ACID
  18. VITAMIN E [Concomitant]
     Active Substance: .ALPHA.-TOCOPHEROL

REACTIONS (2)
  - Neuropathy peripheral [Not Recovered/Not Resolved]
  - Anaemia [Unknown]

NARRATIVE: CASE EVENT DATE: 20170803
